FAERS Safety Report 4740521-5 (Version None)
Quarter: 2005Q3

REPORT INFORMATION
  Report Type: 
  Country: None (occurrence: None)
  Receive Date: 20050804
  Receipt Date: 20050629
  Transmission Date: 20060218
  Serious: No
  Sender: FDA-Public Use
  Company Number: FACT0500481

PATIENT
  Age: 51 Year
  Sex: Male
  Weight: 97.5 kg

DRUGS (3)
  1. FACTIVE [Suspect]
     Indication: RESPIRATORY TRACT INFECTION BACTERIAL
     Dosage: 320    , QD
     Dates: start: 20050624, end: 20050624
  2. ZYRTEC [Concomitant]
  3. HYDROCORTISONE [Concomitant]

REACTIONS (3)
  - DYSPNOEA [None]
  - RASH GENERALISED [None]
  - SWELLING FACE [None]
